FAERS Safety Report 10245966 (Version 1)
Quarter: 2014Q2

REPORT INFORMATION
  Report Type: Spontaneous
  Country: JP (occurrence: JP)
  Receive Date: 20140619
  Receipt Date: 20140619
  Transmission Date: 20141212
  Serious: Yes (Hospitalization)
  Sender: FDA-Public Use
  Company Number: PHHY2014JP074946

PATIENT
  Sex: Male

DRUGS (3)
  1. DIOVAN [Suspect]
     Dosage: UNK (PINK SHEET)
     Route: 048
  2. DIOVAN [Suspect]
     Dosage: 6 MEDICINES INCLUDING 2 TABLETS OF DIOVAN AT NIGHT (GREEN SHEET)
     Route: 048
  3. DIOVAN [Suspect]
     Dosage: 4 TABLETS INCLUDING DIOVAN
     Route: 048

REACTIONS (4)
  - Cerebral infarction [Unknown]
  - Hemiplegia [Unknown]
  - Speech disorder [Unknown]
  - Dysphonia [Unknown]
